FAERS Safety Report 7601265-5 (Version None)
Quarter: 2011Q3

REPORT INFORMATION
  Report Type: 
  Country: None (occurrence: None)
  Receive Date: 20110711
  Receipt Date: 20110701
  Transmission Date: 20111222
  Serious: Yes (Other)
  Sender: FDA-Public Use
  Company Number: PHHY2011GB58430

PATIENT
  Age: 17 Year
  Sex: Male

DRUGS (5)
  1. PREDNISOLONE [Suspect]
     Dosage: 10 MG (ALTERNATE DAYS)
  2. TACROLIMUS [Suspect]
  3. MYCOPHENOLATE MEFETIL [Suspect]
     Dosage: 300 MG/M2, BID
  4. PREDNISOLONE [Suspect]
     Dosage: 10 MG/DAY
  5. MYCOPHENOLATE MEFETIL [Suspect]
     Dosage: 600 MG/M2, UNK

REACTIONS (5)
  - IRIDOCYCLITIS [None]
  - RENAL IMPAIRMENT [None]
  - ANAEMIA [None]
  - TUBULOINTERSTITIAL NEPHRITIS AND UVEITIS SYNDROME [None]
  - EPIDERMAL GROWTH FACTOR RECEPTOR DECREASED [None]
